FAERS Safety Report 4425226-2 (Version None)
Quarter: 2004Q3

REPORT INFORMATION
  Report Type: 
  Country: None (occurrence: None)
  Receive Date: 20040813
  Receipt Date: 20040802
  Transmission Date: 20050211
  Serious: Yes (Hospitalization)
  Sender: FDA-Public Use
  Company Number: JP-JNJFOC-20040705680

PATIENT
  Sex: Female
  Weight: 54.8 kg

DRUGS (4)
  1. REMICADE [Suspect]
     Dosage: 5TH DOSE OF INFLIXIMAB
     Route: 042
  2. REMICADE [Suspect]
     Indication: RHEUMATOID ARTHRITIS
     Route: 042
  3. RHEUMATREX [Suspect]
     Indication: RHEUMATOID ARTHRITIS
  4. AZULFIDINE [Concomitant]
     Indication: RHEUMATOID ARTHRITIS

REACTIONS (10)
  - BIOPSY BONE MARROW ABNORMAL [None]
  - CHEST X-RAY ABNORMAL [None]
  - DIFFUSE LARGE B-CELL LYMPHOMA [None]
  - HEPATIC CYST [None]
  - NON-HODGKIN'S LYMPHOMA [None]
  - PLEURAL FIBROSIS [None]
  - RED BLOOD CELL COUNT DECREASED [None]
  - RENAL CYST [None]
  - SCOLIOSIS [None]
  - THERAPY NON-RESPONDER [None]
